FAERS Safety Report 4543016-7 (Version None)
Quarter: 2005Q1

REPORT INFORMATION
  Report Type: 
  Country: None (occurrence: None)
  Receive Date: 20050103
  Receipt Date: 20041222
  Transmission Date: 20050727
  Serious: Yes (Other)
  Sender: FDA-Public Use
  Company Number: US-JNJFOC-20040906559

PATIENT
  Sex: Female
  Weight: 116.12 kg

DRUGS (12)
  1. REMICADE [Suspect]
     Route: 042
  2. REMICADE [Suspect]
     Route: 042
  3. REMICADE [Suspect]
     Route: 042
  4. REMICADE [Suspect]
     Indication: RHEUMATOID ARTHRITIS
     Route: 042
  5. SYNTHROID [Concomitant]
     Indication: HYPOTHYROIDISM
  6. ARAVA [Concomitant]
  7. IMODIUM [Concomitant]
  8. PRILOSEC [Concomitant]
  9. ATENOLOL [Concomitant]
     Indication: HYPERTENSION
  10. PREDNISONE [Concomitant]
  11. EFFEXOR [Concomitant]
     Indication: DEPRESSION
  12. SYNTEST [Concomitant]

REACTIONS (3)
  - ECZEMA [None]
  - PARAPSORIASIS [None]
  - SYSTEMIC LUPUS ERYTHEMATOSUS [None]
